FAERS Safety Report 15211246 (Version 1)
Quarter: 2018Q3

REPORT INFORMATION
  Report Type: Spontaneous
  Country: US (occurrence: US)
  Receive Date: 20180701
  Receipt Date: 20180701
  Transmission Date: 20181010
  Serious: Yes (Other)
  Sender: FDA-Public Use
  Company Number: None

PATIENT
  Age: 35 Year
  Sex: Male
  Weight: 58.5 kg

DRUGS (1)
  1. CHANTIX [Suspect]
     Active Substance: VARENICLINE TARTRATE
     Indication: SMOKING CESSATION THERAPY
     Dates: start: 20180626, end: 20180701

REACTIONS (4)
  - Suicidal ideation [None]
  - Self-injurious ideation [None]
  - Depression [None]
  - Nightmare [None]

NARRATIVE: CASE EVENT DATE: 20180701
